FAERS Safety Report 21576145 (Version 1)
Quarter: 2022Q4

REPORT INFORMATION
  Report Type: Report from Study
  Country: US (occurrence: US)
  Receive Date: 20221110
  Receipt Date: 20221110
  Transmission Date: 20230112
  Serious: Yes (Hospitalization, Other)
  Sender: FDA-Public Use
  Company Number: US-SUN PHARMACEUTICAL INDUSTRIES LTD-2022R1-362863

PATIENT

DRUGS (1)
  1. CLOZAPINE [Suspect]
     Active Substance: CLOZAPINE
     Indication: Schizoaffective disorder
     Dosage: 200 MILLIGRAM, BID
     Route: 048
     Dates: start: 20140205

REACTIONS (4)
  - Bipolar disorder [Unknown]
  - Suicidal ideation [Unknown]
  - Blood glucose increased [Unknown]
  - Hyponatraemia [Unknown]
